FAERS Safety Report 9612954 (Version 1)
Quarter: 2013Q4

REPORT INFORMATION
  Report Type: Spontaneous
  Country: US (occurrence: US)
  Receive Date: 20131010
  Receipt Date: 20131010
  Transmission Date: 20140711
  Serious: Yes (Other)
  Sender: FDA-Public Use
  Company Number: US-UCBSA-099371

PATIENT
  Sex: 0

DRUGS (2)
  1. NEUPRO [Suspect]
     Indication: PARKINSON^S DISEASE
  2. DIPHENHYDRAMINE [Concomitant]

REACTIONS (1)
  - Hypertensive crisis [Unknown]
